FAERS Safety Report 4457603-8 (Version None)
Quarter: 2004Q3

REPORT INFORMATION
  Report Type: 
  Country: None (occurrence: None)
  Receive Date: 20040901
  Receipt Date: 20040708
  Transmission Date: 20050211
  Serious: No
  Sender: FDA-Public Use
  Company Number: FROV000212

PATIENT
  Age: 56 Year
  Sex: Female

DRUGS (2)
  1. FROVA [Suspect]
     Indication: MIGRAINE
     Dosage: 2.5 MG ORAL
     Route: 048
     Dates: start: 20040708
  2. SYNTHROID [Concomitant]

REACTIONS (2)
  - DYSPNOEA [None]
  - TREMOR [None]
